FAERS Safety Report 7576597-X (Version None)
Quarter: 2011Q2

REPORT INFORMATION
  Report Type: 
  Country: None (occurrence: None)
  Receive Date: 20110624
  Receipt Date: 20110624
  Transmission Date: 20111010
  Serious: Yes (Death)
  Sender: FDA-Public Use
  Company Number: None

PATIENT
  Age: 64 Year
  Sex: Female

DRUGS (3)
  1. LEVOTHYROXINE SODIUM [Concomitant]
  2. REVLIMID [Suspect]
     Indication: MULTIPLE MYELOMA
     Dosage: REVLIMID 15MG EVERY OTHER DAY ORALLY
     Route: 048
     Dates: start: 20100301, end: 20100901
  3. M.V.I. [Concomitant]

REACTIONS (4)
  - GLOMERULAR FILTRATION RATE DECREASED [None]
  - REFUSAL OF TREATMENT BY PATIENT [None]
  - DEMENTIA ALZHEIMER'S TYPE [None]
  - URINARY TRACT INFECTION [None]
